FAERS Safety Report 7669161-5 (Version None)
Quarter: 2011Q3

REPORT INFORMATION
  Report Type: 
  Country: None (occurrence: None)
  Receive Date: 20110808
  Receipt Date: 20110725
  Transmission Date: 20111222
  Serious: Yes (Hospitalization)
  Sender: FDA-Public Use
  Company Number: PHHY2011MX67457

PATIENT
  Age: 47 Year
  Sex: Female

DRUGS (3)
  1. NORVASC [Concomitant]
     Dosage: 10 MG, UNK
  2. DIOVAN [Suspect]
     Indication: HYPERTENSION
     Dosage: 2 TABLETS (80 MG) PER DAY
     Dates: start: 20110301
  3. NORVASC [Concomitant]
     Dosage: 5 MG, UNK

REACTIONS (1)
  - JOINT SWELLING [None]
